FAERS Safety Report 24624217 (Version 1)
Quarter: 2024Q4

REPORT INFORMATION
  Report Type: Spontaneous
  Country: US (occurrence: None)
  Receive Date: 20241115
  Receipt Date: 20241115
  Transmission Date: 20250114
  Serious: Yes (Life-Threatening, Hospitalization)
  Sender: Public
  Company Number: None

PATIENT
  Age: 69 Year
  Sex: Male

DRUGS (1)
  1. SEMAGLUTIDE [Suspect]
     Active Substance: SEMAGLUTIDE
     Indication: Diabetes mellitus
     Dates: end: 20240713

REACTIONS (8)
  - Diarrhoea [None]
  - Vomiting [None]
  - Asthenia [None]
  - Decreased appetite [None]
  - Sinus tachycardia [None]
  - Fatigue [None]
  - Acute kidney injury [None]
  - Starvation ketoacidosis [None]

NARRATIVE: CASE EVENT DATE: 20240713
